FAERS Safety Report 15577077 (Version 1)
Quarter: 2018Q4

REPORT INFORMATION
  Report Type: Spontaneous
  Country: US (occurrence: US)
  Receive Date: 20181101
  Receipt Date: 20181101
  Transmission Date: 20190205
  Serious: Yes (Hospitalization)
  Sender: FDA-Public Use
  Company Number: US-BAXTER-2018BAX026585

PATIENT
  Age: 81 Year
  Sex: Male

DRUGS (1)
  1. NEXTERONE [Suspect]
     Active Substance: AMIODARONE HYDROCHLORIDE
     Indication: PRODUCT USED FOR UNKNOWN INDICATION
     Route: 065

REACTIONS (3)
  - Failure to thrive [Recovering/Resolving]
  - Hepatotoxicity [Recovering/Resolving]
  - Toxicity to various agents [Recovering/Resolving]
